FAERS Safety Report 6334357-1 (Version None)
Quarter: 2009Q3

REPORT INFORMATION
  Report Type: 
  Country: None (occurrence: None)
  Receive Date: 20090831
  Receipt Date: 20090825
  Transmission Date: 20100115
  Serious: Yes (Hospitalization)
  Sender: FDA-Public Use
  Company Number: US-BIOGENIDEC-2009BI027148

PATIENT
  Age: 61 Year
  Sex: Female

DRUGS (2)
  1. TYSABRI [Suspect]
     Indication: MULTIPLE SCLEROSIS
     Route: 042
     Dates: start: 20061003, end: 20080915
  2. TYSABRI [Suspect]
     Route: 042
     Dates: start: 20090402

REACTIONS (11)
  - ADVERSE DRUG REACTION [None]
  - COMPLICATION OF DEVICE REMOVAL [None]
  - DEVICE FAILURE [None]
  - DRUG WITHDRAWAL SYNDROME [None]
  - FATIGUE [None]
  - GAIT DISTURBANCE [None]
  - HYPERSOMNIA [None]
  - MUSCLE SPASMS [None]
  - OVERDOSE [None]
  - SEASONAL ALLERGY [None]
  - VISION BLURRED [None]
